FAERS Safety Report 19865695 (Version 1)
Quarter: 2021Q3

REPORT INFORMATION
  Report Type: Report from Study
  Country: GB (occurrence: GB)
  Receive Date: 20210921
  Receipt Date: 20210921
  Transmission Date: 20211014
  Serious: Yes (Hospitalization)
  Sender: FDA-Public Use
  Company Number: GB-ASTRAZENECA-2021A725488

PATIENT
  Sex: Female

DRUGS (3)
  1. BENRALIZUMAB. [Suspect]
     Active Substance: BENRALIZUMAB
     Dosage: 30MG SC PRE FILLED SYRINGE BENRALIZUMAB INTO RIGHT ARM AT 1035AM 10.9.21
     Route: 058
     Dates: start: 20210207
  2. HYDROCORTISONE. [Concomitant]
     Active Substance: HYDROCORTISONE
     Route: 065
     Dates: start: 20210909
  3. PREDNISOLONE. [Concomitant]
     Active Substance: PREDNISOLONE
     Dosage: PREDNISOLONE 40MG ON 6.9.21
     Route: 065
     Dates: start: 20210609

REACTIONS (3)
  - Nasopharyngitis [Unknown]
  - Hospitalisation [Unknown]
  - Inappropriate schedule of product administration [Unknown]
